FAERS Safety Report 9964872 (Version 1)
Quarter: 2014Q1

REPORT INFORMATION
  Report Type: Spontaneous
  Country: US (occurrence: US)
  Receive Date: 20140305
  Receipt Date: 20140305
  Transmission Date: 20141002
  Serious: No
  Sender: FDA-Public Use
  Company Number: US-AMGEN-USASP2014002707

PATIENT
  Age: 66 Year
  Sex: Male
  Weight: 120.18 kg

DRUGS (13)
  1. ENBREL [Suspect]
     Indication: PSORIASIS
     Dosage: 50 MG, 2 TIMES/WK
     Route: 058
     Dates: start: 201308
  2. CITALOPRAM [Concomitant]
     Dosage: UNK
  3. SPIRONOLACTONE [Concomitant]
     Dosage: UNK
  4. LISINOPRIL [Concomitant]
     Dosage: UNK
  5. ATORVASTATIN CALCIUM [Concomitant]
     Dosage: UNK
  6. TRAZODONE HCL [Concomitant]
     Dosage: UNK
  7. TRICOR                             /00090101/ [Concomitant]
     Dosage: UNK
  8. LEVOFLOXACIN [Concomitant]
     Dosage: UNK
  9. HYDROMORPHONE HCL [Concomitant]
     Dosage: UNK
  10. KERALYT [Concomitant]
     Dosage: UNK
  11. TACLONEX [Concomitant]
     Dosage: UNK
  12. CLOBETASOL [Concomitant]
     Dosage: UNK
  13. TRIAMCINOLONE [Concomitant]
     Dosage: UNK

REACTIONS (2)
  - Psoriasis [Unknown]
  - Nasopharyngitis [Unknown]
